FAERS Safety Report 18040153 (Version 4)
Quarter: 2020Q3

REPORT INFORMATION
  Report Type: Spontaneous
  Country: US (occurrence: US)
  Receive Date: 20200717
  Receipt Date: 20200821
  Transmission Date: 20201103
  Serious: Yes (Death, Other)
  Sender: FDA-Public Use
  Company Number: US-GILEAD-2020-0483271

PATIENT
  Age: 90 Year
  Sex: Male
  Weight: 95 kg

DRUGS (52)
  1. REMDESIVIR. [Suspect]
     Active Substance: REMDESIVIR
     Indication: COVID-19
     Dosage: 200 MG, ONCE
     Route: 042
     Dates: start: 20200627, end: 20200627
  2. REMDESIVIR. [Suspect]
     Active Substance: REMDESIVIR
     Dosage: 100 MG, QD
     Route: 042
     Dates: start: 20200707, end: 20200710
  3. CAMPHOR [Concomitant]
     Active Substance: CAMPHOR
     Dosage: 1 DOSAGE FORM, PRN
     Route: 061
     Dates: start: 20200626, end: 20200704
  4. HEPARIN [Concomitant]
     Active Substance: HEPARIN SODIUM
     Dosage: 5,000 UNITS
     Route: 058
     Dates: start: 20200626, end: 20200627
  5. ACETAMINOPHEN. [Concomitant]
     Active Substance: ACETAMINOPHEN
     Dosage: 1000 MG, ONCE
     Route: 042
     Dates: start: 20200627, end: 20200627
  6. POTASSIUM CHLORIDE. [Concomitant]
     Active Substance: POTASSIUM CHLORIDE
     Dosage: 250 ML, ONCE
     Route: 042
     Dates: start: 20200628, end: 20200628
  7. POTASSIUM PHOSPHATES [Concomitant]
     Active Substance: POTASSIUM PHOSPHATE, DIBASIC\POTASSIUM PHOSPHATE, MONOBASIC
     Dosage: 250 ML, ONCE
     Dates: start: 20200628, end: 20200628
  8. FUROSEMIDE. [Concomitant]
     Active Substance: FUROSEMIDE
     Dosage: 20 MG, ONCE
     Route: 042
     Dates: start: 20200628, end: 20200628
  9. FENTANYL. [Concomitant]
     Active Substance: FENTANYL
     Dosage: UNK
     Dates: start: 20200704, end: 20200710
  10. PROMETHAZINE [Concomitant]
     Active Substance: PROMETHAZINE HYDROCHLORIDE
     Dosage: 25 MG, Q6H
     Route: 061
     Dates: start: 20200627, end: 20200709
  11. DEFINITY [Concomitant]
     Active Substance: PERFLUTREN
     Dosage: UNK
     Route: 042
     Dates: start: 20200628, end: 20200701
  12. LABETALOL [Concomitant]
     Active Substance: LABETALOL\LABETALOL HYDROCHLORIDE
     Dosage: UNK
     Route: 042
     Dates: start: 20200710, end: 20200710
  13. CEFAZOLIN [Concomitant]
     Active Substance: CEFAZOLIN
     Dosage: 2 G, BID
     Dates: start: 20200718, end: 20200720
  14. RENVELA [Concomitant]
     Active Substance: SEVELAMER CARBONATE
     Dosage: UNK
     Dates: start: 20200718, end: 20200720
  15. INSULIN REGULAR HM [Concomitant]
     Active Substance: INSULIN NOS
     Dosage: UNK
     Route: 058
     Dates: start: 20200720, end: 20200720
  16. ALBUTEROL;IPRATROPIUM [Concomitant]
     Active Substance: ALBUTEROL\IPRATROPIUM
     Dosage: 1 DOSAGE FORM, Q4HR
     Route: 055
     Dates: start: 20200627, end: 20200704
  17. ACETAMINOPHEN. [Concomitant]
     Active Substance: ACETAMINOPHEN
     Dosage: 500 MG, Q6H
     Route: 050
     Dates: start: 20200627, end: 20200709
  18. ASPIRIN [ACETYLSALICYLIC ACID] [Concomitant]
     Active Substance: ASPIRIN
     Dosage: 81 MG, QD
     Dates: start: 20200627, end: 20200720
  19. PANTOPRAZOLE [Concomitant]
     Active Substance: PANTOPRAZOLE
     Dosage: 40 MG, QD
     Route: 042
     Dates: start: 20200627, end: 20200630
  20. MIRALAX [Concomitant]
     Active Substance: POLYETHYLENE GLYCOL 3350
     Dosage: UNK
     Route: 050
     Dates: start: 20200719, end: 20200720
  21. LEVOPHED [Concomitant]
     Active Substance: NOREPINEPHRINE BITARTRATE
     Dosage: UNK
     Dates: start: 20200706, end: 20200710
  22. DEXAMETHASONE. [Concomitant]
     Active Substance: DEXAMETHASONE
     Dosage: 6 MG, QD
     Route: 048
     Dates: start: 20200627, end: 20200706
  23. ENOXAPARIN [Concomitant]
     Active Substance: ENOXAPARIN
     Dosage: 40 MG, QD
     Route: 058
     Dates: start: 20200627, end: 20200628
  24. NOREPINEPHRINE. [Concomitant]
     Active Substance: NOREPINEPHRINE
     Dosage: UNK
     Route: 042
     Dates: start: 20200706, end: 20200707
  25. BISACODYL. [Concomitant]
     Active Substance: BISACODYL
     Dosage: 10 MG, ONCE
     Route: 048
     Dates: start: 20200708, end: 20200708
  26. FOLIC ACID. [Concomitant]
     Active Substance: FOLIC ACID
     Dosage: 1 MG, QD
     Dates: start: 20200716, end: 20200720
  27. PIPERACILLIN AND TAZOBACTAM [Concomitant]
     Active Substance: PIPERACILLIN SODIUM\TAZOBACTAM SODIUM
     Dosage: UNK
     Route: 042
     Dates: start: 20200707, end: 20200707
  28. VASOPRESSIN. [Concomitant]
     Active Substance: VASOPRESSIN
     Dosage: UNK
     Route: 042
     Dates: start: 20200714, end: 20200715
  29. THIAMINE. [Concomitant]
     Active Substance: THIAMINE
     Dosage: UNK
     Dates: start: 20200716, end: 20200720
  30. REMDESIVIR. [Suspect]
     Active Substance: REMDESIVIR
     Dosage: 100 MG, QD
     Route: 042
     Dates: start: 20200628, end: 20200702
  31. MORPHINE SULFATE. [Concomitant]
     Active Substance: MORPHINE SULFATE
     Dosage: 4 MG
     Route: 042
  32. INSULIN NPH [INSULIN ISOPHANE BOVINE] [Concomitant]
     Dosage: UNK
     Route: 058
     Dates: start: 20200720, end: 20200720
  33. DEXTROSE IN WATER [Concomitant]
     Active Substance: DEXTROSE\WATER
     Dosage: UNK
     Route: 042
     Dates: start: 20200626, end: 20200720
  34. INSULIN LISPRO [Concomitant]
     Active Substance: INSULIN LISPRO
     Dosage: UNK
     Route: 058
     Dates: start: 20200626, end: 20200704
  35. ATORVASTATIN [Concomitant]
     Active Substance: ATORVASTATIN
     Dosage: 80 MG, QD
     Route: 050
     Dates: start: 20200629, end: 20200720
  36. HYDRALAZINE [Concomitant]
     Active Substance: HYDRALAZINE HYDROCHLORIDE
     Dosage: 10 MG, Q6H
     Route: 042
     Dates: start: 20200702, end: 20200709
  37. AMLODIPINE [Concomitant]
     Active Substance: AMLODIPINE BESYLATE
     Dosage: 5 MG, QD
     Route: 050
     Dates: start: 20200702, end: 20200703
  38. INSULIN GLARGINE [Concomitant]
     Active Substance: INSULIN GLARGINE
     Dosage: 8 UNITS
     Route: 058
     Dates: start: 20200702, end: 20200704
  39. MIDAZOLAM. [Concomitant]
     Active Substance: MIDAZOLAM
     Dosage: 40 MG, ONCE
     Route: 042
     Dates: start: 20200704, end: 20200704
  40. METOLAZONE. [Concomitant]
     Active Substance: METOLAZONE
     Dosage: 5 MG, ONCE
     Route: 048
     Dates: start: 20200710, end: 20200710
  41. VANCOMYCIN [Concomitant]
     Active Substance: VANCOMYCIN
     Dosage: UNK
     Route: 042
     Dates: start: 20200716
  42. LORAZEPAM. [Concomitant]
     Active Substance: LORAZEPAM
     Dosage: 2 MG
     Route: 042
  43. TUMS [Concomitant]
     Active Substance: CALCIUM CARBONATE
     Dosage: 550 MG, TID
     Route: 048
     Dates: start: 20200720, end: 20200720
  44. GLUCAGON. [Concomitant]
     Active Substance: GLUCAGON
     Dosage: 1 MG
     Route: 030
     Dates: start: 20200626, end: 20200720
  45. MUPIROCIN. [Concomitant]
     Active Substance: MUPIROCIN
     Dosage: 10 DOSES
     Route: 045
     Dates: start: 20200627, end: 20200701
  46. ALBUMIN (HUMAN) [Concomitant]
     Active Substance: ALBUMIN HUMAN
     Dosage: UNK
     Route: 042
     Dates: start: 20200706, end: 20200706
  47. CEFTRIAXONE. [Concomitant]
     Active Substance: CEFTRIAXONE
     Dosage: UNK UNK, QD
     Route: 042
     Dates: start: 20200708, end: 20200714
  48. PRECEDEX [Concomitant]
     Active Substance: DEXMEDETOMIDINE HYDROCHLORIDE
     Dosage: UNK
     Dates: start: 20130628, end: 20200713
  49. PROPOFOL. [Concomitant]
     Active Substance: PROPOFOL
     Dosage: UNK
     Dates: start: 20200704, end: 20200710
  50. METHYLPREDNISOLONE. [Concomitant]
     Active Substance: METHYLPREDNISOLONE
     Dosage: 125 MG, ONCE
     Route: 042
     Dates: start: 20200626, end: 20200626
  51. FLUOXETINE [Concomitant]
     Active Substance: FLUOXETINE HYDROCHLORIDE
     Dosage: 20 MG, QD
     Route: 050
     Dates: start: 20200627, end: 20200720
  52. PHENYLEPHRINE [Concomitant]
     Active Substance: PHENYLEPHRINE HYDROCHLORIDE
     Dosage: UNK
     Dates: start: 20200714, end: 20200714

REACTIONS (3)
  - Bradycardia [Recovered/Resolved]
  - Acute myocardial infarction [Unknown]
  - Respiratory failure [Fatal]

NARRATIVE: CASE EVENT DATE: 202007
